FAERS Safety Report 7210784-5 (Version None)
Quarter: 2011Q1

REPORT INFORMATION
  Report Type: 
  Country: None (occurrence: None)
  Receive Date: 20110105
  Receipt Date: 20070329
  Transmission Date: 20110831
  Serious: Yes (Other)
  Sender: FDA-Public Use
  Company Number: PHHY2007CA03773

PATIENT
  Sex: Female

DRUGS (1)
  1. SANDOSTATIN LAR [Suspect]
     Dosage: 300 MG, EVERY 4 WEEKS
     Route: 030
     Dates: start: 20051107

REACTIONS (3)
  - PAIN [None]
  - HERPES ZOSTER [None]
  - BLOOD PRESSURE SYSTOLIC INCREASED [None]
